FAERS Safety Report 8876459 (Version 1)
Quarter: 2012Q4

REPORT INFORMATION
  Report Type: Spontaneous
  Country: US (occurrence: None)
  Receive Date: 20121025
  Receipt Date: 20121025
  Transmission Date: 20130627
  Serious: No
  Sender: FDA-Public Use
  Company Number: FDB-2012-041

PATIENT
  Age: 48 Year
  Sex: Female
  Weight: 72.58 kg

DRUGS (1)
  1. TECHNETIUM TC-99M SULFUR COLLOID KIT [Suspect]
     Dosage: oral,  1mCi
     Route: 048
     Dates: start: 20120922

REACTIONS (5)
  - Nausea [None]
  - Asthenia [None]
  - Fatigue [None]
  - Muscular weakness [None]
  - Peripheral sensory neuropathy [None]
